FAERS Safety Report 25943291 (Version 1)
Quarter: 2025Q4

REPORT INFORMATION
  Report Type: Spontaneous
  Country: US (occurrence: None)
  Receive Date: 20251020
  Receipt Date: 20251020
  Transmission Date: 20260117
  Serious: Yes (Other)
  Sender: FDA-CTU
  Company Number: None

PATIENT
  Age: 21 Year
  Sex: Female
  Weight: 94.05 kg

DRUGS (1)
  1. NEXPLANON [Suspect]
     Active Substance: ETONOGESTREL
     Indication: Contraception
     Dates: start: 20250707, end: 20251020

REACTIONS (4)
  - Contraceptive implant [None]
  - Vaginal haemorrhage [None]
  - Pain in extremity [None]
  - Implant site swelling [None]

NARRATIVE: CASE EVENT DATE: 20251020
